FAERS Safety Report 15126721 (Version 2)
Quarter: 2018Q3

REPORT INFORMATION
  Report Type: Spontaneous
  Country: None (occurrence: US)
  Receive Date: 20180710
  Receipt Date: 20180726
  Transmission Date: 20181010
  Serious: Yes (Other)
  Sender: FDA-Public Use
  Company Number: US-GLAXOSMITHKLINE-US2018120787

PATIENT
  Sex: Female

DRUGS (3)
  1. TRELEGY ELLIPTA [Suspect]
     Active Substance: FLUTICASONE FUROATE\UMECLIDINIUM BROMIDE\VILANTEROL TRIFENATATE
     Indication: CHRONIC OBSTRUCTIVE PULMONARY DISEASE
     Dosage: 1 PUFF QD, 100MCG/62.5MCG/25MCG
     Route: 055
     Dates: start: 201806
  2. LASIX [Concomitant]
     Active Substance: FUROSEMIDE
  3. ANORO ELLIPTA [Suspect]
     Active Substance: UMECLIDINIUM BROMIDE\VILANTEROL TRIFENATATE
     Indication: CHRONIC OBSTRUCTIVE PULMONARY DISEASE
     Dosage: 1 PUFF(S), QD
     Route: 055

REACTIONS (7)
  - Cough [Unknown]
  - Dyspnoea [Unknown]
  - Weight increased [Unknown]
  - Therapeutic response shortened [Unknown]
  - Respiratory tract infection [Recovered/Resolved]
  - Productive cough [Unknown]
  - Oropharyngeal pain [Recovered/Resolved]
